FAERS Safety Report 7450189-5 (Version None)
Quarter: 2011Q2

REPORT INFORMATION
  Report Type: 
  Country: None (occurrence: None)
  Receive Date: 20110428
  Receipt Date: 20110428
  Transmission Date: 20111010
  Serious: No
  Sender: FDA-Public Use
  Company Number: None

PATIENT
  Age: 81 Year
  Sex: Female

DRUGS (1)
  1. PRADAXA [Suspect]
     Indication: ATRIAL FIBRILLATION
     Dosage: TAKE 1 CAPSULE TWICE A DAY TO THIN BLOOD
     Dates: start: 20101122

REACTIONS (5)
  - ABDOMINAL DISCOMFORT [None]
  - VOMITING [None]
  - BONE PAIN [None]
  - SYNCOPE [None]
  - VAGINAL HAEMORRHAGE [None]
